FAERS Safety Report 8365964-2 (Version None)
Quarter: 2012Q2

REPORT INFORMATION
  Report Type: 
  Country: None (occurrence: None)
  Receive Date: 20120517
  Receipt Date: 20120515
  Transmission Date: 20120825
  Serious: No
  Sender: FDA-Public Use
  Company Number: US-PFIZER INC-2012106903

PATIENT
  Sex: Male
  Weight: 78.9 kg

DRUGS (6)
  1. WARFARIN [Concomitant]
     Dosage: UNK
  2. LASIX [Concomitant]
     Dosage: UNK
  3. METOPROLOL [Concomitant]
     Dosage: UNK
  4. SUTENT [Suspect]
     Indication: RENAL CANCER
  5. SUTENT [Suspect]
     Indication: RENAL CELL CARCINOMA
     Dosage: 50 MG, 1X/DAY CYCLE 4 WEEKS ON AND 2 OFF
     Route: 048
     Dates: start: 20120404
  6. OXYCODONE [Concomitant]
     Dosage: UNK

REACTIONS (3)
  - YELLOW SKIN [None]
  - RASH [None]
  - BLISTER [None]
